FAERS Safety Report 13666297 (Version 1)
Quarter: 2017Q2

REPORT INFORMATION
  Report Type: Spontaneous
  Country: US (occurrence: US)
  Receive Date: 20170619
  Receipt Date: 20170619
  Transmission Date: 20170830
  Serious: No
  Sender: FDA-Public Use
  Company Number: US-ROCHE-1294019

PATIENT
  Sex: Female

DRUGS (3)
  1. XELODA [Suspect]
     Active Substance: CAPECITABINE
     Indication: COLON CANCER
     Dosage: 14 DAYS AND 7 DAYS OFF, 3 TABLET
     Route: 048
     Dates: start: 20130820
  2. XELODA [Suspect]
     Active Substance: CAPECITABINE
     Route: 048
     Dates: start: 20130821
  3. XELODA [Suspect]
     Active Substance: CAPECITABINE
     Dosage: 3 TWICE A DAY, 14 DAYS ON AND 7 DAYS OFF
     Route: 048
     Dates: start: 20130822

REACTIONS (6)
  - Asthenia [Unknown]
  - Abdominal pain upper [Unknown]
  - Drug dose omission [Unknown]
  - Malaise [Unknown]
  - Fatigue [Unknown]
  - Diarrhoea [Unknown]
